FAERS Safety Report 5513224-7 (Version None)
Quarter: 2007Q4

REPORT INFORMATION
  Report Type: 
  Country: None (occurrence: None)
  Receive Date: 20071112
  Receipt Date: 20071107
  Transmission Date: 20080405
  Serious: Yes (Life-Threatening, Hospitalization)
  Sender: FDA-Public Use
  Company Number: ES-ASTRAZENECA-2007AC02156

PATIENT
  Age: 25 Year
  Sex: Female

DRUGS (6)
  1. MERONEM [Suspect]
     Indication: PNEUMONIA
     Route: 042
     Dates: start: 20070901, end: 20070903
  2. VALPROIC ACID [Interacting]
     Indication: CONVULSION
     Route: 042
     Dates: start: 20070825
  3. PHENYTOIN [Concomitant]
     Indication: STATUS EPILEPTICUS
     Dates: start: 20070825, end: 20070928
  4. PLAVIX [Concomitant]
     Indication: FACTOR V LEIDEN MUTATION
     Dates: start: 20060601
  5. DEPAKENE [Concomitant]
     Indication: PNEUMONIA
     Route: 048
     Dates: start: 20000101, end: 20070824
  6. AMOXICILLIN + CLAVULANIC [Concomitant]
     Indication: PNEUMONIA
     Dates: start: 20070827, end: 20070831

REACTIONS (3)
  - ANTICONVULSANT DRUG LEVEL DECREASED [None]
  - DRUG INTERACTION [None]
  - STATUS EPILEPTICUS [None]
